FAERS Safety Report 12437864 (Version 1)
Quarter: 2016Q2

REPORT INFORMATION
  Report Type: Spontaneous
  Country: US (occurrence: None)
  Receive Date: 20160603
  Receipt Date: 20160603
  Transmission Date: 20160815
  Serious: Yes (Hospitalization)
  Sender: FDA-Public Use
  Company Number: None

PATIENT
  Age: 52 Year
  Sex: Male
  Weight: 87.6 kg

DRUGS (1)
  1. ORITAVANCIN DIPHOSPHATE, 400MG THE MEDICINES COMPANY [Suspect]
     Active Substance: ORITAVANCIN
     Indication: CELLULITIS
     Dosage: 1200 MG ONCE INTRAVENOUS (NOT OTHERWISE SPECIFIED)
     Route: 042

REACTIONS (3)
  - Pyrexia [None]
  - Rash generalised [None]
  - Rash erythematous [None]

NARRATIVE: CASE EVENT DATE: 20160425
